FAERS Safety Report 4470921-2 (Version None)
Quarter: 2004Q4

REPORT INFORMATION
  Report Type: 
  Country: None (occurrence: None)
  Receive Date: 20041011
  Receipt Date: 20041004
  Transmission Date: 20050328
  Serious: Yes (Hospitalization)
  Sender: FDA-Public Use
  Company Number: AU-MERCK-0410AUS00069

PATIENT
  Age: 73 Year
  Sex: Male

DRUGS (7)
  1. CLOPIDOGREL BISULFATE [Concomitant]
     Route: 065
  2. LANSOPRAZOLE [Concomitant]
     Route: 065
  3. RABEPRAZOLE SODIUM [Concomitant]
     Route: 065
  4. VIOXX [Suspect]
     Indication: POLYMYALGIA RHEUMATICA
     Route: 048
     Dates: end: 20041001
  5. SIMVASTATIN [Concomitant]
     Indication: CARDIAC DISORDER
     Route: 048
  6. SIMVASTATIN [Concomitant]
     Route: 048
     Dates: end: 20040901
  7. SIMVASTATIN [Concomitant]
     Route: 048
     Dates: start: 20040901

REACTIONS (6)
  - CARDIAC DISORDER [None]
  - DYSPNOEA EXERTIONAL [None]
  - ERUCTATION [None]
  - FLATULENCE [None]
  - GYNAECOMASTIA [None]
  - OESOPHAGEAL DISORDER [None]
